FAERS Safety Report 25659962 (Version 1)
Quarter: 2025Q3

REPORT INFORMATION
  Report Type: Spontaneous
  Country: GB (occurrence: GB)
  Receive Date: 20250808
  Receipt Date: 20250808
  Transmission Date: 20251020
  Serious: Yes (Other)
  Sender: ELI LILLY AND COMPANY
  Company Number: GB-MHRA-EMIS-593-a54f2939-5176-44e1-abf9-5a10afe23b44

PATIENT
  Age: 74 Year
  Sex: Female
  Weight: 125 kg

DRUGS (8)
  1. MOUNJARO [Suspect]
     Active Substance: TIRZEPATIDE
     Indication: Type 2 diabetes mellitus
     Dosage: INJECT ONE 0.6 ML DOSE SUBCUTANEOUSLY ONCE EACH WEEK
     Route: 058
     Dates: start: 20250221, end: 20250405
  2. DILTIAZEM [Concomitant]
     Active Substance: DILTIAZEM
     Indication: Product used for unknown indication
     Dates: start: 20250205, end: 20250409
  3. POLYETHYLENE GLYCOLS [Concomitant]
     Active Substance: POLYETHYLENE GLYCOLS
     Indication: Product used for unknown indication
     Dates: start: 20250217
  4. MORPHINE SULFATE [Concomitant]
     Active Substance: MORPHINE SULFATE
     Indication: Osteoarthritis
     Dates: start: 20250220, end: 20250404
  5. FLUCLOXACILLIN [Concomitant]
     Active Substance: FLUCLOXACILLIN
     Indication: Product used for unknown indication
     Dates: start: 20250320, end: 20250418
  6. FLUCONAZOLE [Concomitant]
     Active Substance: FLUCONAZOLE
     Indication: Product used for unknown indication
     Dates: start: 20250417
  7. HYDROCORTISONE [Concomitant]
     Active Substance: HYDROCORTISONE
     Indication: Product used for unknown indication
     Dates: start: 20250417
  8. MICONAZOLE [Concomitant]
     Active Substance: MICONAZOLE
     Indication: Product used for unknown indication
     Dates: start: 20250417

REACTIONS (5)
  - Stevens-Johnson syndrome [Unknown]
  - Dysphagia [Unknown]
  - Ulcer [Unknown]
  - Angioedema [Unknown]
  - Mouth swelling [Unknown]

NARRATIVE: CASE EVENT DATE: 20250428
